FAERS Safety Report 13756592 (Version 3)
Quarter: 2018Q1

REPORT INFORMATION
  Report Type: Spontaneous
  Country: IT (occurrence: IT)
  Receive Date: 20170714
  Receipt Date: 20180227
  Transmission Date: 20180508
  Serious: No
  Sender: FDA-Public Use
  Company Number: IT-PFIZER INC-2017301635

PATIENT
  Age: 21 Year
  Sex: Female

DRUGS (2)
  1. ZITROMAX [Suspect]
     Active Substance: AZITHROMYCIN
     Indication: ANTIBIOTIC PROPHYLAXIS
     Dosage: 1 DF, 1X/DAY
     Route: 048
     Dates: start: 20170419
  2. ZITROMAX [Suspect]
     Active Substance: AZITHROMYCIN
     Indication: ARTHROPOD BITE

REACTIONS (4)
  - Product use in unapproved indication [Unknown]
  - Erythema [Recovered/Resolved]
  - Palatal oedema [Recovered/Resolved]
  - Pruritus [Recovered/Resolved]

NARRATIVE: CASE EVENT DATE: 20170419
